FAERS Safety Report 5788140-6 (Version None)
Quarter: 2008Q2

REPORT INFORMATION
  Report Type: 
  Country: None (occurrence: None)
  Receive Date: 20080625
  Receipt Date: 20080604
  Transmission Date: 20081010
  Serious: No
  Sender: FDA-Public Use
  Company Number: US-BOEHRINGER INGELHEIM GMBH, GERMANY-2008-BP-08739BP

PATIENT
  Sex: Female

DRUGS (3)
  1. ATROVENT HFA [Suspect]
     Indication: CHRONIC OBSTRUCTIVE PULMONARY DISEASE
     Route: 055
     Dates: start: 20071201, end: 20080401
  2. ALBUTEROL [Concomitant]
  3. INTAL [Concomitant]

REACTIONS (4)
  - ABDOMINAL PAIN UPPER [None]
  - BURNING SENSATION [None]
  - DIARRHOEA [None]
  - DYSURIA [None]
